FAERS Safety Report 7636941-1 (Version None)
Quarter: 2011Q3

REPORT INFORMATION
  Report Type: 
  Country: None (occurrence: None)
  Receive Date: 20110726
  Receipt Date: 20110714
  Transmission Date: 20111222
  Serious: Yes (Hospitalization, Other)
  Sender: FDA-Public Use
  Company Number: US-ASTRAZENECA-2011SE42165

PATIENT
  Age: 32 Year
  Sex: Male

DRUGS (3)
  1. SEROQUEL XR [Suspect]
     Indication: MENTAL DISORDER
     Route: 048
     Dates: start: 20090101, end: 20110101
  2. SEROQUEL XR [Suspect]
     Route: 048
     Dates: start: 20090101, end: 20110101
  3. CELEXA [Concomitant]

REACTIONS (4)
  - FALL [None]
  - OFF LABEL USE [None]
  - OPEN WOUND [None]
  - UPPER LIMB FRACTURE [None]
